FAERS Safety Report 9772314 (Version 2)
Quarter: 2013Q4

REPORT INFORMATION
  Report Type: Report from Study
  Country: BR (occurrence: BR)
  Receive Date: 20131219
  Receipt Date: 20131219
  Transmission Date: 20140711
  Serious: Yes (Other)
  Sender: FDA-Public Use
  Company Number: BR-ROCHE-751337

PATIENT
  Age: 60 Year
  Sex: Female
  Weight: 73 kg

DRUGS (9)
  1. TOCILIZUMAB [Suspect]
     Indication: RHEUMATOID ARTHRITIS
     Dosage: ROUTE: ENDOVENOUS, FORM: INFUSION (RECEIVED 18 INFUSIONS)
     Route: 042
  2. TOCILIZUMAB [Suspect]
     Dosage: 12TH INFUSION, ROUTE: ENDOVENOUS
     Route: 042
  3. RISEDROSS [Concomitant]
     Route: 065
  4. FOLIC ACID [Concomitant]
     Route: 065
  5. MIRTAX [Concomitant]
     Route: 065
  6. OMEPRAZOLE [Concomitant]
     Route: 065
  7. PREDNISONA [Concomitant]
  8. OSTEONUTRI [Concomitant]
  9. VYTORIN [Concomitant]

REACTIONS (7)
  - Cataract [Recovered/Resolved]
  - Musculoskeletal pain [Not Recovered/Not Resolved]
  - Pain in extremity [Not Recovered/Not Resolved]
  - Neck pain [Not Recovered/Not Resolved]
  - Cough [Not Recovered/Not Resolved]
  - Urinary tract infection [Not Recovered/Not Resolved]
  - Therapeutic response decreased [Unknown]
